FAERS Safety Report 18207404 (Version 3)
Quarter: 2021Q1

REPORT INFORMATION
  Report Type: Spontaneous
  Country: JP (occurrence: JP)
  Receive Date: 20200828
  Receipt Date: 20210323
  Transmission Date: 20210419
  Serious: Yes (Death, Life-Threatening, Hospitalization)
  Sender: FDA-Public Use
  Company Number: JP-ASTRAZENECA-2020SE84357

PATIENT
  Age: 69 Year
  Sex: Male
  Weight: 53 kg

DRUGS (8)
  1. AMLODIPINE [Concomitant]
     Active Substance: AMLODIPINE BESYLATE
  2. NEXIUM [Concomitant]
     Active Substance: ESOMEPRAZOLE MAGNESIUM
  3. TRAZENTA [Concomitant]
     Active Substance: LINAGLIPTIN
  4. MAGMITT [Concomitant]
     Active Substance: MAGNESIUM OXIDE
  5. BAKTAR [Concomitant]
     Active Substance: SULFAMETHOXAZOLE\TRIMETHOPRIM
  6. BONALON [Concomitant]
     Active Substance: ALENDRONATE SODIUM
  7. IMFINZI [Suspect]
     Active Substance: DURVALUMAB
     Indication: NON-SMALL CELL LUNG CANCER
     Route: 042
     Dates: start: 20200507, end: 20200521
  8. CALONAL [Concomitant]
     Active Substance: ACETAMINOPHEN

REACTIONS (3)
  - Radiation pneumonitis [Fatal]
  - Malignant neoplasm progression [Fatal]
  - Interstitial lung disease [Recovering/Resolving]

NARRATIVE: CASE EVENT DATE: 20200609
